FAERS Safety Report 9454240 (Version 2)
Quarter: 2013Q4

REPORT INFORMATION
  Report Type: Spontaneous
  Country: FR (occurrence: FR)
  Receive Date: 20130812
  Receipt Date: 20131010
  Transmission Date: 20140711
  Serious: Yes (Death, Hospitalization)
  Sender: FDA-Public Use
  Company Number: FR-B.I. PHARMACEUTICALS,INC./RIDGEFIELD-2013-FF-02100FF

PATIENT
  Age: 76 Year
  Sex: Female

DRUGS (5)
  1. PRADAXA [Suspect]
     Dosage: 300 MG
     Route: 048
     Dates: start: 20130215
  2. KARDEGIC [Concomitant]
     Dosage: 75 MG
     Route: 048
     Dates: start: 201111, end: 20130214
  3. NEBILOX [Concomitant]
     Dosage: 0.5 TABLET DAILY
     Route: 048
     Dates: start: 200908
  4. LEVOTHYROX [Concomitant]
     Dosage: 125 MCG
     Route: 048
  5. CORDARONE [Concomitant]
     Route: 048

REACTIONS (1)
  - Haemorrhagic stroke [Fatal]
